FAERS Safety Report 5117085-X (Version None)
Quarter: 2006Q3

REPORT INFORMATION
  Report Type: 
  Country: None (occurrence: None)
  Receive Date: 20060925
  Receipt Date: 20060915
  Transmission Date: 20061208
  Serious: Yes (Disabling)
  Sender: FDA-Public Use
  Company Number: 2006084974

PATIENT
  Age: 57 Year
  Sex: Male
  Weight: 89 kg

DRUGS (1)
  1. LIPITOR [Suspect]

REACTIONS (3)
  - EPILEPSY [None]
  - FATIGUE [None]
  - NEUROSIS [None]
